FAERS Safety Report 4333921-9 (Version None)
Quarter: 2004Q2

REPORT INFORMATION
  Report Type: 
  Country: None (occurrence: None)
  Receive Date: 20040402
  Receipt Date: 20040323
  Transmission Date: 20050107
  Serious: Yes (Other)
  Sender: FDA-Public Use
  Company Number: HQWYE095325MAR04

PATIENT
  Age: 41 Year
  Sex: Male
  Weight: 93.07 kg

DRUGS (7)
  1. RAPAMUNE [Suspect]
     Indication: PROPHYLAXIS AGAINST TRANSPLANT REJECTION
     Dosage: 4 MG 1 X PER 1 DAY, ORAL
     Route: 048
     Dates: start: 20020311
  2. LIPITOR [Concomitant]
  3. IMUIRAN (AZATHIOPRINE) [Concomitant]
  4. CALCIUM CARBONATE (CALCIUM CARBONATE) [Concomitant]
  5. MULTIVITAMINS, PLAIN (MULTIVITAINS, PLAIN) [Concomitant]
  6. PREDNISONE [Concomitant]
  7. SULFAMETHIZOLE (SULFAMETHIZOLE) [Concomitant]

REACTIONS (3)
  - DRUG TOXICITY [None]
  - FIBROSIS [None]
  - GLOMERULONEPHRITIS FOCAL [None]
